FAERS Safety Report 6151600-2 (Version None)
Quarter: 2009Q2

REPORT INFORMATION
  Report Type: 
  Country: None (occurrence: None)
  Receive Date: 20090410
  Receipt Date: 20090331
  Transmission Date: 20091009
  Serious: Yes (Hospitalization)
  Sender: FDA-Public Use
  Company Number: JP-PFIZER INC-2009188335

PATIENT

DRUGS (1)
  1. AZULFIDINE [Suspect]
     Dosage: 500 MG, 1X/DAY
     Route: 048
     Dates: start: 20090218

REACTIONS (2)
  - DRUG ERUPTION [None]
  - LIVER DISORDER [None]
